FAERS Safety Report 25690541 (Version 1)
Quarter: 2025Q3

REPORT INFORMATION
  Report Type: Spontaneous
  Country: CA (occurrence: CA)
  Receive Date: 20250818
  Receipt Date: 20250818
  Transmission Date: 20251020
  Serious: Yes (Hospitalization)
  Sender: HIKMA
  Company Number: CA-HIKMA PHARMACEUTICALS USA INC.-CA-H14001-25-09383

PATIENT
  Age: 61 Year
  Sex: Female

DRUGS (4)
  1. SILIQ [Suspect]
     Active Substance: BRODALUMAB
     Indication: Psoriasis
     Dosage: 210 MILLIGRAM, WEEKLY
     Route: 058
  2. SILIQ [Suspect]
     Active Substance: BRODALUMAB
     Dosage: 210 MILLIGRAM, WEEKLY
     Route: 058
  3. SILIQ [Suspect]
     Active Substance: BRODALUMAB
     Dosage: 210 MILLIGRAM, QOW
     Route: 058
  4. VANCOMYCIN [Suspect]
     Active Substance: VANCOMYCIN
     Indication: Product used for unknown indication
     Route: 065

REACTIONS (5)
  - Psoriasis [Not Recovered/Not Resolved]
  - Psoriatic arthropathy [Not Recovered/Not Resolved]
  - Rash [Not Recovered/Not Resolved]
  - Drug titration error [Not Recovered/Not Resolved]
  - Off label use [Not Recovered/Not Resolved]
